FAERS Safety Report 20356835 (Version 1)
Quarter: 2022Q1

REPORT INFORMATION
  Report Type: Spontaneous
  Country: US (occurrence: None)
  Receive Date: 20220119
  Receipt Date: 20220119
  Transmission Date: 20220424
  Serious: Yes (Other)
  Sender: FDA-Public Use
  Company Number: None

PATIENT
  Age: 41 Year
  Sex: Female
  Weight: 56.25 kg

DRUGS (4)
  1. BUPRENORPHINE\NALOXONE [Suspect]
     Active Substance: BUPRENORPHINE\NALOXONE
     Indication: Drug abuse
     Dosage: OTHER QUANTITY : 56 FILMS;?FREQUENCY : TWICE A DAY;?
     Route: 060
  2. CYMBALTA [Concomitant]
     Active Substance: DULOXETINE HYDROCHLORIDE
  3. LINZESS [Concomitant]
     Active Substance: LINACLOTIDE
  4. IBUPROFEN [Concomitant]
     Active Substance: IBUPROFEN

REACTIONS (2)
  - Endodontic procedure [None]
  - Tooth extraction [None]

NARRATIVE: CASE EVENT DATE: 20160210
